FAERS Safety Report 14121170 (Version 1)
Quarter: 2017Q4

REPORT INFORMATION
  Report Type: Spontaneous
  Country: US (occurrence: US)
  Receive Date: 20171024
  Receipt Date: 20171024
  Transmission Date: 20180321
  Serious: No
  Sender: FDA-Public Use
  Company Number: US-ASTRAZENECA-2017SF01471

PATIENT
  Age: 60 Year
  Sex: Female
  Weight: 136.1 kg

DRUGS (2)
  1. PREDNISONE. [Suspect]
     Active Substance: PREDNISONE
     Route: 065
  2. SYMBICORT [Suspect]
     Active Substance: BUDESONIDE\FORMOTEROL FUMARATE DIHYDRATE
     Indication: DYSPNOEA
     Dosage: TWO TIMES A DAY
     Route: 055

REACTIONS (13)
  - Hypoaesthesia oral [Not Recovered/Not Resolved]
  - Dizziness [Recovered/Resolved]
  - Intentional product misuse [Unknown]
  - Swelling [Unknown]
  - Diabetes mellitus [Unknown]
  - Swelling face [Unknown]
  - Weight increased [Unknown]
  - Swollen tongue [Unknown]
  - Contusion [Unknown]
  - Off label use [Unknown]
  - Product use in unapproved indication [Unknown]
  - Hypersensitivity [Unknown]
  - Pigmentation disorder [Unknown]
